FAERS Safety Report 9254486 (Version 1)
Quarter: 2013Q2

REPORT INFORMATION
  Report Type: Spontaneous
  Country: ES (occurrence: None)
  Receive Date: 20130422
  Receipt Date: 20130422
  Transmission Date: 20140414
  Serious: Yes (Other)
  Sender: FDA-Public Use
  Company Number: AUR-APL-2013-03195

PATIENT
  Age: 72 Year
  Sex: Male

DRUGS (2)
  1. MIRTAZAPINE (MIRTAZAPINE) [Suspect]
     Indication: PROGRESSIVE MULTIFOCAL LEUKOENCEPHALOPATHY
     Dates: start: 2010
  2. MEFLOQUINE [Suspect]
     Indication: PROGRESSIVE MULTIFOCAL LEUKOENCEPHALOPATHY
     Dates: start: 2010, end: 2010

REACTIONS (11)
  - Gait disturbance [None]
  - Speech disorder [None]
  - Dysarthria [None]
  - Ataxia [None]
  - Congestive cardiomyopathy [None]
  - Left ventricular dysfunction [None]
  - Ventricular hypokinesia [None]
  - Ischaemic stroke [None]
  - Agitation [None]
  - Dysphagia [None]
  - Activities of daily living impaired [None]
